FAERS Safety Report 18115355 (Version 3)
Quarter: 2021Q3

REPORT INFORMATION
  Report Type: Spontaneous
  Country: JP (occurrence: JP)
  Receive Date: 20200805
  Receipt Date: 20210702
  Transmission Date: 20211014
  Serious: Yes (Hospitalization, Other)
  Sender: FDA-Public Use
  Company Number: JP-BRISTOL-MYERS SQUIBB COMPANY-BMS-2020-062524

PATIENT
  Age: 61 Year
  Sex: Male
  Weight: 55.6 kg

DRUGS (11)
  1. PREDONINE [Suspect]
     Active Substance: PREDNISOLONE
     Dosage: 15 MILLIGRAM, QD
     Route: 065
     Dates: start: 20200715
  2. OPDIVO [Suspect]
     Active Substance: NIVOLUMAB
     Indication: GASTRIC CANCER
     Dosage: 240 MG, Q2W
     Route: 041
     Dates: start: 20200409
  3. PREDONINE [Suspect]
     Active Substance: PREDNISOLONE
     Indication: HYPOKALAEMIA
     Dosage: 20 MILLIGRAM
     Route: 065
     Dates: start: 20200708
  4. PREDONINE [Suspect]
     Active Substance: PREDNISOLONE
     Indication: MALNUTRITION
     Dosage: 20 MILLIGRAM
     Route: 065
     Dates: start: 20200711
  5. PREDONINE [Suspect]
     Active Substance: PREDNISOLONE
     Indication: DEHYDRATION
     Dosage: 20 MILLIGRAM
     Route: 065
     Dates: start: 20200710, end: 20200712
  6. ENSURE [NUTRIENTS NOS] [Concomitant]
     Indication: PRODUCT USED FOR UNKNOWN INDICATION
     Dosage: UNK
     Route: 065
  7. BIO?THREE [Concomitant]
     Active Substance: HERBALS
     Indication: PRODUCT USED FOR UNKNOWN INDICATION
     Dosage: UNK
     Route: 065
     Dates: start: 20200619
  8. ALBUMINAR [Concomitant]
     Active Substance: ALBUMIN HUMAN
     Indication: PRODUCT USED FOR UNKNOWN INDICATION
     Dosage: UNK FOR 3 DAYS
     Route: 065
     Dates: start: 20200630
  9. PREDONINE [Suspect]
     Active Substance: PREDNISOLONE
     Indication: DIARRHOEA
     Dosage: 30 MILLIGRAM
     Route: 065
     Dates: start: 20200702, end: 20200706
  10. PREDONINE [Suspect]
     Active Substance: PREDNISOLONE
     Dosage: 20 MILLIGRAM
     Route: 065
     Dates: start: 20200712
  11. LIPACREON [Concomitant]
     Active Substance: PANCRELIPASE
     Indication: PANCREATIC ENZYMES
     Dosage: UNK
     Route: 065
     Dates: start: 20200619

REACTIONS (5)
  - Malnutrition [Unknown]
  - Dehydration [Recovered/Resolved]
  - Diarrhoea [Recovering/Resolving]
  - Hypokalaemia [Recovered/Resolved]
  - Fall [Unknown]

NARRATIVE: CASE EVENT DATE: 20200517
